FAERS Safety Report 10222382 (Version 2)
Quarter: 2014Q2

REPORT INFORMATION
  Report Type: Report from Study
  Country: TR (occurrence: TR)
  Receive Date: 20140606
  Receipt Date: 20140617
  Transmission Date: 20141212
  Serious: Yes (Life-Threatening)
  Sender: FDA-Public Use
  Company Number: TR-JNJFOC-20140603848

PATIENT
  Age: 48 Year
  Sex: Male
  Weight: 79 kg

DRUGS (4)
  1. REMICADE [Suspect]
     Indication: COLITIS ULCERATIVE
     Route: 042
     Dates: start: 20140604
  2. REMICADE [Suspect]
     Indication: COLITIS ULCERATIVE
     Route: 042
     Dates: start: 20140514
  3. IMURAN [Concomitant]
     Dosage: TWICE DAILY
     Route: 065
  4. ASACOL [Concomitant]
     Dosage: 2 TABLETS 3 TIMES A DAY
     Route: 065

REACTIONS (3)
  - Hypotension [Recovering/Resolving]
  - Infusion related reaction [Recovering/Resolving]
  - Hypoxia [Recovering/Resolving]
